FAERS Safety Report 8576664 (Version 2)
Quarter: 2012Q4

REPORT INFORMATION
  Report Type: 
  Country: IT (occurrence: IT)
  Receive Date: 20120523
  Receipt Date: 20121022
  Transmission Date: 20130627
  Serious: Yes (Hospitalization)
  Sender: FDA-Public Use
  Company Number: IT-ROCHE-1071096

PATIENT
  Age: 49 Year
  Sex: Male

DRUGS (7)
  1. AVASTIN [Suspect]
     Indication: RECTAL CANCER
     Route: 042
     Dates: start: 20120313, end: 20120328
  2. ELOXATIN [Suspect]
     Indication: RECTAL CANCER
     Route: 042
     Dates: start: 20111026, end: 20120328
  3. FLUOROURACIL [Suspect]
     Indication: RECTAL CANCER
     Route: 042
     Dates: start: 20111026, end: 20120328
  4. PREFOLIC [Concomitant]
     Route: 065
  5. ZOFRAN [Concomitant]
     Route: 065
  6. TRIMETON [Concomitant]
     Route: 065
  7. DECADRON [Concomitant]
     Route: 065

REACTIONS (5)
  - Pneumonia [Recovered/Resolved]
  - Hyperpyrexia [Recovered/Resolved]
  - Chills [Recovered/Resolved]
  - Cough [Recovered/Resolved]
  - Arthralgia [Recovered/Resolved]
